FAERS Safety Report 7207550-3 (Version None)
Quarter: 2010Q4

REPORT INFORMATION
  Report Type: 
  Country: None (occurrence: None)
  Receive Date: 20101221
  Receipt Date: 20101207
  Transmission Date: 20110411
  Serious: Yes (Hospitalization)
  Sender: FDA-Public Use
  Company Number: IDA-00471

PATIENT
  Sex: Female

DRUGS (9)
  1. PROPRANOLOL [Suspect]
     Indication: HYPERTENSION
     Dosage: 20 MG BID ORAL FORMULATION: TABLET
     Route: 048
     Dates: end: 20101102
  2. NITRODERM [Suspect]
     Indication: CHEST PAIN
     Dosage: 10 MG DAILY TRANSDERMAL
     Route: 062
     Dates: start: 20101001, end: 20101102
  3. INDAPAMIDE [Suspect]
     Indication: HYPERTENSION
     Dosage: 1.5 MG DAILY ORAL
     Route: 048
     Dates: start: 20101001, end: 20101102
  4. TEKTURNA [Suspect]
     Indication: HYPERTENSION
     Dosage: 300 MG DAILY ORAL
     Route: 048
     Dates: end: 20101102
  5. LERCANIDIPINE [Suspect]
     Indication: HYPERTENSION
     Dosage: 10 MG BID ORAL
     Route: 048
     Dates: end: 20101102
  6. LEVOTHYROX (LEVOTHYROXINE SODIUM) [Concomitant]
  7. SPIRIVA [Concomitant]
  8. LORAZEPAM [Concomitant]
  9. KARDEGIC (ACETYLSALICYLATE LYSINE) [Concomitant]

REACTIONS (8)
  - CHEST PAIN [None]
  - CONFUSIONAL STATE [None]
  - DRUG INTERACTION [None]
  - DYSPNOEA EXERTIONAL [None]
  - FALL [None]
  - HYPONATRAEMIA [None]
  - HYPOTENSION [None]
  - MALAISE [None]
